FAERS Safety Report 9099661 (Version 1)
Quarter: 2013Q1

REPORT INFORMATION
  Report Type: Spontaneous
  Country: US (occurrence: US)
  Receive Date: 20130214
  Receipt Date: 20130214
  Transmission Date: 20140127
  Serious: Yes (Other)
  Sender: FDA-Public Use
  Company Number: US-JNJFOC-20130205916

PATIENT
  Age: 27 Year
  Sex: Male
  Weight: 97.52 kg

DRUGS (3)
  1. ROGAINE FOR MEN EXTRA STRENGTH [Suspect]
     Route: 061
  2. ROGAINE FOR MEN EXTRA STRENGTH [Suspect]
     Indication: HAIR GROWTH ABNORMAL
     Route: 061
     Dates: start: 20130101, end: 20130205
  3. AMPICILLIN [Concomitant]
     Indication: ACNE
     Route: 065
     Dates: start: 20100602

REACTIONS (1)
  - Hallucination, auditory [Recovered/Resolved]
